FAERS Safety Report 10094242 (Version 1)
Quarter: 2014Q2

REPORT INFORMATION
  Report Type: Report from Study
  Country: CN (occurrence: CN)
  Receive Date: 20140422
  Receipt Date: 20140422
  Transmission Date: 20141212
  Serious: Yes (Other)
  Sender: FDA-Public Use
  Company Number: CN-ROCHE-1381661

PATIENT
  Sex: Female
  Weight: 72 kg

DRUGS (3)
  1. PEGASYS [Suspect]
     Indication: HEPATITIS C
     Route: 058
     Dates: start: 201303, end: 20140324
  2. RIBAVIRIN [Suspect]
     Indication: HEPATITIS C
     Dosage: 6 DOSE FORMS PER DAY
     Route: 048
     Dates: start: 201303, end: 201304
  3. RIBAVIRIN [Suspect]
     Dosage: 2 DOSE FORMS PER DAY
     Route: 048
     Dates: start: 201304, end: 20140324

REACTIONS (9)
  - White blood cell count decreased [Not Recovered/Not Resolved]
  - Diarrhoea [Recovering/Resolving]
  - Vomiting [Recovering/Resolving]
  - Anaemia [Not Recovered/Not Resolved]
  - Asthenia [Not Recovered/Not Resolved]
  - Musculoskeletal pain [Recovering/Resolving]
  - Decreased appetite [Not Recovered/Not Resolved]
  - Pruritus [Not Recovered/Not Resolved]
  - Drug ineffective [Unknown]
